FAERS Safety Report 10457531 (Version 7)
Quarter: 2015Q4

REPORT INFORMATION
  Report Type: Report from Study
  Country: FR (occurrence: FR)
  Receive Date: 20140916
  Receipt Date: 20151229
  Transmission Date: 20160304
  Serious: Yes (Death, Hospitalization)
  Sender: FDA-Public Use
  Company Number: FR-009507513-1408FRA001855

PATIENT
  Sex: Male
  Weight: 67 kg

DRUGS (11)
  1. OXYCONTIN [Concomitant]
     Active Substance: OXYCODONE HYDROCHLORIDE
  2. PRIMPERAN [Concomitant]
     Active Substance: METOCLOPRAMIDE HYDROCHLORIDE
  3. IPILIMUMAB [Suspect]
     Active Substance: IPILIMUMAB
     Indication: ANTI-EPITHELIAL ANTIBODY
     Dosage: UNK
     Route: 042
     Dates: start: 20140611, end: 20140611
  4. OXYNORM [Concomitant]
     Active Substance: OXYCODONE HYDROCHLORIDE
  5. GEMCITABINE (+) IFOSFAMIDE (+) MESNA (+) PREDNISONE (+) VINORELBINE TA [Concomitant]
  6. PEMBROLIZUMAB. [Suspect]
     Active Substance: PEMBROLIZUMAB
     Indication: METASTATIC MALIGNANT MELANOMA
     Dosage: 2 MG/KG, Q3W, DOSE 134 MG
     Route: 042
     Dates: start: 20140718, end: 20140718
  7. RIVOTRIL [Concomitant]
     Active Substance: CLONAZEPAM
  8. LYRICA [Concomitant]
     Active Substance: PREGABALIN
  9. OROCAL [Concomitant]
     Active Substance: CALCIUM CARBONATE
  10. IPILIMUMAB [Suspect]
     Active Substance: IPILIMUMAB
     Dosage: UNK
     Route: 042
     Dates: start: 20140701, end: 20140701
  11. CORTANCYL [Concomitant]
     Active Substance: PREDNISONE
     Indication: NEURALGIA
     Dosage: 10 MG, QD
     Route: 048

REACTIONS (2)
  - Hepatitis cholestatic [Recovered/Resolved]
  - Malignant neoplasm progression [Fatal]
